FAERS Safety Report 20797814 (Version 1)
Quarter: 2022Q2

REPORT INFORMATION
  Report Type: Spontaneous
  Country: ES (occurrence: ES)
  Receive Date: 20220506
  Receipt Date: 20220506
  Transmission Date: 20220721
  Serious: Yes (Other)
  Sender: FDA-Public Use
  Company Number: ES-009507513-2205ESP000556

PATIENT
  Age: 65 Year
  Sex: Male
  Weight: 90 kg

DRUGS (7)
  1. ROCURONIUM BROMIDE [Suspect]
     Active Substance: ROCURONIUM BROMIDE
     Indication: Neuromuscular blocking therapy
     Dosage: TOTAL DOSE:144 MILLIGRAM (INDUCTION: 50 MG+ CONTINUOUS PERFUSION: UP TO 94 MG, TOTAL DOSE OF PERFUSI
     Dates: start: 202204, end: 202204
  2. ROCURONIUM BROMIDE [Suspect]
     Active Substance: ROCURONIUM BROMIDE
     Indication: Endotracheal intubation
  3. ROCURONIUM BROMIDE [Suspect]
     Active Substance: ROCURONIUM BROMIDE
     Indication: Induction of anaesthesia
  4. SUGAMMADEX SODIUM [Suspect]
     Active Substance: SUGAMMADEX SODIUM
     Indication: Neuromuscular blockade reversal
     Dosage: 200 MILLIGRAM (2.2 MG/KG)
     Dates: start: 202204, end: 202204
  5. SUGAMMADEX SODIUM [Suspect]
     Active Substance: SUGAMMADEX SODIUM
     Dosage: 200 MILLIGRAM (2.2 MG/KG)
     Dates: start: 202204, end: 202204
  6. SUGAMMADEX SODIUM [Suspect]
     Active Substance: SUGAMMADEX SODIUM
     Dosage: 200 MILLIGRAM (2.2 MG/KG)
     Dates: start: 202204, end: 202204
  7. SUGAMMADEX SODIUM [Suspect]
     Active Substance: SUGAMMADEX SODIUM
     Dosage: 100 MILLIGRAM (1.1 MG/KG)
     Dates: start: 202204, end: 202204

REACTIONS (7)
  - Hypoventilation [Unknown]
  - Tachypnoea [Unknown]
  - Therapeutic product effect decreased [Unknown]
  - Tidal volume decreased [Unknown]
  - Restlessness [Unknown]
  - Agitation [Unknown]
  - Product use issue [Unknown]

NARRATIVE: CASE EVENT DATE: 20220401
